FAERS Safety Report 17246632 (Version 1)
Quarter: 2020Q1

REPORT INFORMATION
  Report Type: Spontaneous
  Country: US (occurrence: US)
  Receive Date: 20200107
  Receipt Date: 20200107
  Transmission Date: 20200409
  Serious: Yes (Other)
  Sender: FDA-Public Use
  Company Number: None

PATIENT
  Age: 41 Year
  Sex: Female
  Weight: 76.5 kg

DRUGS (1)
  1. KETOROLAC [Suspect]
     Active Substance: KETOROLAC TROMETHAMINE
     Indication: MIGRAINE

REACTIONS (1)
  - Akathisia [None]
